FAERS Safety Report 17510463 (Version 1)
Quarter: 2020Q1

REPORT INFORMATION
  Report Type: Spontaneous
  Country: SI (occurrence: DE)
  Receive Date: 20200306
  Receipt Date: 20200306
  Transmission Date: 20200409
  Serious: Yes (Other)
  Sender: FDA-Public Use
  Company Number: SI-BAYER-2020-038629

PATIENT
  Age: 21 Year
  Sex: Male

DRUGS (2)
  1. KOGENATE [Suspect]
     Active Substance: ANTIHEMOPHILIC FACTOR, HUMAN RECOMBINANT
     Indication: FACTOR VIII DEFICIENCY
     Dosage: 2000 IU, TIW
     Dates: end: 2016
  2. KOVALTRY [Suspect]
     Active Substance: ANTIHEMOPHILIC FACTOR, HUMAN RECOMBINANT
     Indication: FACTOR VIII DEFICIENCY
     Dosage: 2000 IU, TIW; 24 IU/KG
     Dates: start: 2016, end: 202001

REACTIONS (4)
  - Contusion [None]
  - Anti factor VIII antibody positive [None]
  - Haemorrhage [None]
  - Soft tissue haemorrhage [None]
